FAERS Safety Report 18584850 (Version 1)
Quarter: 2020Q4

REPORT INFORMATION
  Report Type: Spontaneous
  Country: US (occurrence: US)
  Receive Date: 20201204
  Receipt Date: 20201204
  Transmission Date: 20210114
  Serious: Yes (Hospitalization)
  Sender: FDA-Public Use
  Company Number: None

PATIENT
  Age: 64 Year
  Sex: Female
  Weight: 93.4 kg

DRUGS (2)
  1. SALINE [Suspect]
     Active Substance: SODIUM CHLORIDE
     Dates: start: 20201201, end: 20201201
  2. BAMLANIVIMAB. [Suspect]
     Active Substance: BAMLANIVIMAB
     Dosage: ?          OTHER FREQUENCY:ONCE;?
     Route: 040
     Dates: start: 20201201, end: 20201201

REACTIONS (7)
  - Muscle spasms [None]
  - Dyspnoea [None]
  - Trismus [None]
  - Hypotension [None]
  - Chills [None]
  - Pyrexia [None]
  - Tremor [None]

NARRATIVE: CASE EVENT DATE: 20201201
